FAERS Safety Report 5446500-7 (Version None)
Quarter: 2007Q3

REPORT INFORMATION
  Report Type: 
  Country: None (occurrence: None)
  Receive Date: 20070907
  Receipt Date: 20070827
  Transmission Date: 20080115
  Serious: Yes (Other)
  Sender: FDA-Public Use
  Company Number: PHNU2007DE02969

PATIENT
  Age: 70 Year
  Sex: Female

DRUGS (1)
  1. FAMVIR [Suspect]
     Indication: HERPES SIMPLEX
     Dosage: 1 DF, BID, INTERMITTENTLY
     Route: 048
     Dates: start: 19970101

REACTIONS (1)
  - OSTEOARTHRITIS [None]
